FAERS Safety Report 16785787 (Version 1)
Quarter: 2019Q3

REPORT INFORMATION
  Report Type: Spontaneous
  Country: SE (occurrence: SE)
  Receive Date: 20190909
  Receipt Date: 20190909
  Transmission Date: 20191005
  Serious: Yes (Hospitalization)
  Sender: FDA-Public Use
  Company Number: PHHY2019SE206115

PATIENT
  Age: 65 Year
  Sex: Female

DRUGS (4)
  1. LERGIGAN (PROMETHAZINE HYDROCHLORIDE) [Suspect]
     Active Substance: PROMETHAZINE HYDROCHLORIDE
     Indication: PRODUCT USED FOR UNKNOWN INDICATION
     Dosage: 525 MG, TOTAL (21 TABLETTER A 5 MG)
     Route: 048
     Dates: start: 201904, end: 201904
  2. BISOPROLOL [Suspect]
     Active Substance: BISOPROLOL
     Indication: PRODUCT USED FOR UNKNOWN INDICATION
     Dosage: 175 MG, TOTAL (7 ST A 25 MG)
     Route: 048
     Dates: start: 201904, end: 201904
  3. IMOVANE [Suspect]
     Active Substance: ZOPICLONE
     Indication: PRODUCT USED FOR UNKNOWN INDICATION
     Dosage: 52.5 MG, TOTAL (7 ST)
     Route: 048
     Dates: start: 201904, end: 201904
  4. PROPAVAN [Suspect]
     Active Substance: PROPIOMAZINE
     Indication: PRODUCT USED FOR UNKNOWN INDICATION
     Dosage: 1 OT, TOTAL (7 ST)
     Route: 048
     Dates: start: 201904, end: 201904

REACTIONS (3)
  - Somnolence [Unknown]
  - Intentional self-injury [Unknown]
  - Intentional overdose [Unknown]

NARRATIVE: CASE EVENT DATE: 201904
